FAERS Safety Report 5695939-3 (Version None)
Quarter: 2008Q2

REPORT INFORMATION
  Report Type: 
  Country: None (occurrence: None)
  Receive Date: 20080407
  Receipt Date: 20080402
  Transmission Date: 20081010
  Serious: Yes (Other)
  Sender: FDA-Public Use
  Company Number: US-BRISTOL-MYERS SQUIBB COMPANY-14137566

PATIENT

DRUGS (1)
  1. ORENCIA [Suspect]

REACTIONS (1)
  - FEMUR FRACTURE [None]
